FAERS Safety Report 25886721 (Version 1)
Quarter: 2025Q4

REPORT INFORMATION
  Report Type: Report from Study
  Country: EU (occurrence: EU)
  Receive Date: 20251006
  Receipt Date: 20251006
  Transmission Date: 20260118
  Serious: Yes (Death, Hospitalization)
  Sender: MYLAN
  Company Number: EU-SA-2025SA243547

PATIENT
  Age: 52 Year
  Sex: Female
  Weight: 70 kg

DRUGS (57)
  1. DEXAMETHASONE [Suspect]
     Active Substance: DEXAMETHASONE
     Indication: Plasma cell myeloma refractory
     Dosage: 40 MILLIGRAM, QW
     Dates: start: 20221209, end: 20221209
  2. DEXAMETHASONE [Suspect]
     Active Substance: DEXAMETHASONE
     Dosage: 40 MILLIGRAM, QW
     Dates: start: 20221215, end: 20221215
  3. DEXAMETHASONE [Suspect]
     Active Substance: DEXAMETHASONE
     Dosage: 40 MILLIGRAM, QW
     Dates: start: 20221221, end: 20221221
  4. DEXAMETHASONE [Suspect]
     Active Substance: DEXAMETHASONE
     Dosage: 40 MILLIGRAM, QW
     Dates: start: 20221229, end: 20221229
  5. DEXAMETHASONE [Suspect]
     Active Substance: DEXAMETHASONE
     Dosage: 40 MILLIGRAM, QW
     Dates: start: 20230106, end: 20230106
  6. DEXAMETHASONE [Suspect]
     Active Substance: DEXAMETHASONE
     Dosage: 40 MILLIGRAM, QW
     Dates: start: 20230113, end: 20230113
  7. DEXAMETHASONE [Suspect]
     Active Substance: DEXAMETHASONE
     Dosage: 40 MILLIGRAM, QW
     Dates: start: 20230120, end: 20230120
  8. DEXAMETHASONE [Suspect]
     Active Substance: DEXAMETHASONE
     Dosage: 40 MILLIGRAM, QW
     Dates: start: 20230126, end: 20230126
  9. DEXAMETHASONE [Suspect]
     Active Substance: DEXAMETHASONE
     Dosage: 40 MILLIGRAM, QW
     Dates: start: 20230203, end: 20230224
  10. DEXAMETHASONE [Suspect]
     Active Substance: DEXAMETHASONE
     Dosage: 40 MILLIGRAM, QW
     Dates: start: 20230303, end: 20230324
  11. DEXAMETHASONE [Suspect]
     Active Substance: DEXAMETHASONE
     Dosage: 40 MILLIGRAM, QW
     Dates: start: 20230331, end: 20230421
  12. DEXAMETHASONE [Suspect]
     Active Substance: DEXAMETHASONE
     Dosage: 40 MILLIGRAM, QW
     Dates: start: 20230428, end: 20230519
  13. DEXAMETHASONE [Suspect]
     Active Substance: DEXAMETHASONE
     Dosage: 40 MILLIGRAM, QW
     Dates: start: 20230526, end: 20230616
  14. DEXAMETHASONE [Suspect]
     Active Substance: DEXAMETHASONE
     Dosage: 20 MILLIGRAM, QW
     Dates: start: 20230623, end: 20230714
  15. DEXAMETHASONE [Suspect]
     Active Substance: DEXAMETHASONE
     Dosage: 20 MILLIGRAM, BIWEEKLY (40 MILLIGRAM, QW)
     Dates: start: 20230721, end: 20230811
  16. DEXAMETHASONE [Suspect]
     Active Substance: DEXAMETHASONE
     Dosage: 20 MILLIGRAM, QW
     Dates: start: 20230818, end: 20230908
  17. DEXAMETHASONE [Suspect]
     Active Substance: DEXAMETHASONE
     Dosage: 20 MILLIGRAM, QW
     Dates: start: 20230915, end: 20231006
  18. POMALIDOMIDE [Suspect]
     Active Substance: POMALIDOMIDE
     Indication: Plasma cell myeloma refractory
     Dosage: 4 MILLIGRAM, QD
     Dates: start: 20221209, end: 20221229
  19. POMALIDOMIDE [Suspect]
     Active Substance: POMALIDOMIDE
     Dosage: 4 MILLIGRAM, QD
     Dates: start: 20230106, end: 20230126
  20. POMALIDOMIDE [Suspect]
     Active Substance: POMALIDOMIDE
     Dosage: 4 MILLIGRAM, QD
     Dates: start: 20230203, end: 20230223
  21. POMALIDOMIDE [Suspect]
     Active Substance: POMALIDOMIDE
     Dosage: 4 MILLIGRAM, QD
     Dates: start: 20230303, end: 20230323
  22. POMALIDOMIDE [Suspect]
     Active Substance: POMALIDOMIDE
     Dosage: 4 MILLIGRAM, QD
     Dates: start: 20230331, end: 20230420
  23. POMALIDOMIDE [Suspect]
     Active Substance: POMALIDOMIDE
     Dosage: 4 MILLIGRAM, QD
     Dates: start: 20230428, end: 20230518
  24. POMALIDOMIDE [Suspect]
     Active Substance: POMALIDOMIDE
     Dosage: 4 MILLIGRAM, QD
     Dates: start: 20230526, end: 20230615
  25. POMALIDOMIDE [Suspect]
     Active Substance: POMALIDOMIDE
     Dosage: 4 MILLIGRAM, QD
     Dates: start: 20230623, end: 20230713
  26. POMALIDOMIDE [Suspect]
     Active Substance: POMALIDOMIDE
     Dosage: 4 MILLIGRAM, QD
     Dates: start: 20230721, end: 20230811
  27. POMALIDOMIDE [Suspect]
     Active Substance: POMALIDOMIDE
     Dosage: 4 MILLIGRAM, QD
     Dates: start: 20230818, end: 20230907
  28. POMALIDOMIDE [Suspect]
     Active Substance: POMALIDOMIDE
     Dosage: 4 MILLIGRAM, QD
     Dates: start: 20230915, end: 20231005
  29. ISATUXIMAB [Suspect]
     Active Substance: ISATUXIMAB
     Indication: Plasma cell myeloma refractory
     Dosage: 740 MILLIGRAM, QW
     Dates: start: 20221209, end: 20221209
  30. ISATUXIMAB [Suspect]
     Active Substance: ISATUXIMAB
     Dosage: 740 MILLIGRAM, QW
     Dates: start: 20221215, end: 20221215
  31. ISATUXIMAB [Suspect]
     Active Substance: ISATUXIMAB
     Dosage: 740 MILLIGRAM, QW
     Dates: start: 20221221, end: 20221221
  32. ISATUXIMAB [Suspect]
     Active Substance: ISATUXIMAB
     Dosage: 740 MILLIGRAM, QW
     Dates: start: 20221229, end: 20221229
  33. ISATUXIMAB [Suspect]
     Active Substance: ISATUXIMAB
     Dosage: 740 MILLIGRAM, BIWEEKLY (1480 MILLIGRAM, QW)
     Dates: start: 20230106, end: 20230106
  34. ISATUXIMAB [Suspect]
     Active Substance: ISATUXIMAB
     Dosage: 740 MILLIGRAM, BIWEEKLY (1480 MILLIGRAM, QW)
     Dates: start: 20230120, end: 20230120
  35. ISATUXIMAB [Suspect]
     Active Substance: ISATUXIMAB
     Dosage: 740 MILLIGRAM, BIWEEKLY (1480 MILLIGRAM, QW)
     Dates: start: 20230203, end: 20230203
  36. ISATUXIMAB [Suspect]
     Active Substance: ISATUXIMAB
     Dosage: 740 MILLIGRAM, BIWEEKLY (1480 MILLIGRAM, QW)
     Dates: start: 20230217, end: 20230217
  37. ISATUXIMAB [Suspect]
     Active Substance: ISATUXIMAB
     Dosage: 740 MILLIGRAM, BIWEEKLY (1480 MILLIGRAM, QW)
     Dates: start: 20230303, end: 20230317
  38. ISATUXIMAB [Suspect]
     Active Substance: ISATUXIMAB
     Dosage: 740 MILLIGRAM, BIWEEKLY (1480 MILLIGRAM, QW)
     Dates: start: 20230331, end: 20230414
  39. ISATUXIMAB [Suspect]
     Active Substance: ISATUXIMAB
     Dosage: 700 MILLIGRAM, BIWEEKLY (1400 MG, QW)
     Dates: start: 20230428, end: 20230512
  40. ISATUXIMAB [Suspect]
     Active Substance: ISATUXIMAB
     Dosage: 700 MILLIGRAM, BIWEEKLY (1400 MG, QW)
     Dates: start: 20230526, end: 20230609
  41. ISATUXIMAB [Suspect]
     Active Substance: ISATUXIMAB
     Dosage: 700 MILLIGRAM, BIWEEKLY (1400 MG, QW)
     Dates: start: 20230623, end: 20230707
  42. ISATUXIMAB [Suspect]
     Active Substance: ISATUXIMAB
     Dosage: 700 MILLIGRAM, BIWEEKLY (1400 MG, QW)
     Dates: start: 20230721, end: 20230804
  43. ISATUXIMAB [Suspect]
     Active Substance: ISATUXIMAB
     Dosage: 700 MILLIGRAM, BIWEEKLY (1400 MG, QW)
     Dates: start: 20230818, end: 20230901
  44. ISATUXIMAB [Suspect]
     Active Substance: ISATUXIMAB
     Dosage: 700 MILLIGRAM, BIWEEKLY (1400 MG, QW)
     Dates: start: 20230915, end: 20230929
  45. BACTRIM [Concomitant]
     Active Substance: SULFAMETHOXAZOLE\TRIMETHOPRIM
     Indication: Infection prophylaxis
     Dosage: UNK
  46. LEUCOVORIN CALCIUM [Concomitant]
     Active Substance: LEUCOVORIN CALCIUM
     Indication: Haematotoxicity
     Dosage: UNK
  47. VALACYCLOVIR HYDROCHLORIDE [Concomitant]
     Active Substance: VALACYCLOVIR HYDROCHLORIDE
     Indication: Antiviral prophylaxis
     Dosage: UNK
  48. ELIQUIS [Concomitant]
     Active Substance: APIXABAN
     Indication: Thrombosis prophylaxis
     Dosage: UNK
  49. RELPAX [Concomitant]
     Active Substance: ELETRIPTAN HYDROBROMIDE
     Dosage: UNK
  50. ZOMETA [Concomitant]
     Active Substance: ZOLEDRONIC ACID
     Indication: Hypercalcaemia
     Dosage: UNK
  51. ACETAMINOPHEN [Concomitant]
     Active Substance: ACETAMINOPHEN
     Indication: Prophylaxis
     Dosage: UNK, BEFORE EACH INJECTION OF ISATUXIMAB
  52. RANITIDINE [Concomitant]
     Active Substance: RANITIDINE
     Indication: Prophylaxis
     Dosage: UNK
  53. POLARAMINE [Concomitant]
     Active Substance: DEXCHLORPHENIRAMINE MALEATE
     Indication: Prophylaxis
     Dosage: UNK, BEFORE EACH INJECTION OF ISATUXIMAB
  54. ESOMEPRAZOLE [Concomitant]
     Active Substance: ESOMEPRAZOLE
     Dosage: UNK
  55. SKENAN [Concomitant]
     Active Substance: MORPHINE SULFATE
     Dosage: UNK
  56. MORPHINE SULFATE [Concomitant]
     Active Substance: MORPHINE SULFATE
     Dosage: UNK
  57. Transipeg [Concomitant]
     Indication: Constipation prophylaxis
     Dosage: UNK

REACTIONS (1)
  - COVID-19 [Fatal]

NARRATIVE: CASE EVENT DATE: 20240110
